FAERS Safety Report 22211062 (Version 1)
Quarter: 2023Q2

REPORT INFORMATION
  Report Type: Report from Study
  Country: CH (occurrence: CH)
  Receive Date: 20230414
  Receipt Date: 20230414
  Transmission Date: 20230721
  Serious: Yes (Death)
  Sender: FDA-Public Use
  Company Number: CH-002147023-NVSC2023CH084967

PATIENT
  Age: 77 Year
  Sex: Male

DRUGS (1)
  1. PLUVICTO [Suspect]
     Active Substance: LUTETIUM LU-177 VIPIVOTIDE TETRAXETAN
     Indication: Prostate cancer metastatic
     Dosage: 7400 MBQ, 6QW
     Route: 042
     Dates: start: 20221121, end: 20230328

REACTIONS (1)
  - Death [Fatal]
